FAERS Safety Report 16766094 (Version 1)
Quarter: 2019Q3

REPORT INFORMATION
  Report Type: Spontaneous
  Country: US (occurrence: US)
  Receive Date: 20190713
  Receipt Date: 20190713
  Transmission Date: 20191005
  Serious: No
  Sender: FDA-Public Use
  Company Number: None

PATIENT

DRUGS (1)
  1. LOSARTAN 100MG [Suspect]
     Active Substance: LOSARTAN

REACTIONS (2)
  - Blood pressure inadequately controlled [None]
  - Product substitution issue [None]
